FAERS Safety Report 5386712-4 (Version None)
Quarter: 2007Q3

REPORT INFORMATION
  Report Type: 
  Country: None (occurrence: None)
  Receive Date: 20070713
  Receipt Date: 20070703
  Transmission Date: 20080115
  Serious: Yes (Death)
  Sender: FDA-Public Use
  Company Number: CA-ROCHE-505415

PATIENT
  Age: 45 Year
  Sex: Male

DRUGS (1)
  1. FUZEON [Suspect]
     Dosage: FORM REPORTED AS VIAL.
     Route: 058
     Dates: start: 20050309, end: 20050601

REACTIONS (1)
  - DEATH [None]
